FAERS Safety Report 21081470 (Version 1)
Quarter: 2022Q3

REPORT INFORMATION
  Report Type: Spontaneous
  Country: US (occurrence: US)
  Receive Date: 20220714
  Receipt Date: 20220714
  Transmission Date: 20221027
  Serious: No
  Sender: FDA-Public Use
  Company Number: US-BRISTOL-MYERS SQUIBB COMPANY-2022-074239

PATIENT
  Age: 66 Year
  Sex: Female
  Weight: 95.71 kg

DRUGS (1)
  1. ORENCIA [Suspect]
     Active Substance: ABATACEPT
     Indication: Psoriatic arthropathy
     Dosage: DOSE : 4
     Route: 065
     Dates: start: 20220404

REACTIONS (3)
  - Musculoskeletal stiffness [Unknown]
  - Blister infected [Unknown]
  - Joint swelling [Not Recovered/Not Resolved]
